FAERS Safety Report 8488999-8 (Version None)
Quarter: 2012Q3

REPORT INFORMATION
  Report Type: 
  Country: None (occurrence: None)
  Receive Date: 20120705
  Receipt Date: 20120629
  Transmission Date: 20120928
  Serious: No
  Sender: FDA-Public Use
  Company Number: US-PFIZER INC-2012158214

PATIENT
  Age: 85 Year
  Sex: Female

DRUGS (16)
  1. ALBUTEROL [Concomitant]
     Dosage: UNK
  2. LORAZEPAM [Concomitant]
     Dosage: UNK
  3. BUDESONIDE [Concomitant]
     Dosage: UNK
  4. BUPROPION [Concomitant]
     Dosage: UNK
  5. BYSTOLIC [Concomitant]
     Dosage: UNK
  6. PRILOSEC [Concomitant]
     Dosage: UNK
  7. OXYGEN [Concomitant]
     Dosage: UNK, AT NIGHT
  8. SERTRALINE [Concomitant]
     Dosage: UNK
  9. CELEBREX [Suspect]
     Indication: BACK PAIN
     Dosage: 200 MG, UNK
  10. AZOR [Concomitant]
     Dosage: UNK
  11. HYDROXYZINE PAMOATE [Suspect]
     Dosage: UNK
  12. ATIVAN [Concomitant]
     Dosage: UNK
  13. AMOXICILLIN [Concomitant]
     Dosage: UNK
  14. BROVANA [Concomitant]
     Dosage: UNK
  15. CIPROFLOXACIN [Concomitant]
     Dosage: UNK
  16. ZOLPIDEM [Concomitant]
     Dosage: UNK

REACTIONS (2)
  - DIARRHOEA [None]
  - NAUSEA [None]
